FAERS Safety Report 7593097-1 (Version None)
Quarter: 2011Q3

REPORT INFORMATION
  Report Type: 
  Country: None (occurrence: None)
  Receive Date: 20110706
  Receipt Date: 20110627
  Transmission Date: 20111222
  Serious: Yes (Other)
  Sender: FDA-Public Use
  Company Number: FR-ROCHE-787260

PATIENT
  Sex: Female

DRUGS (2)
  1. AROMATASE INHIBITORS [Concomitant]
  2. HERCEPTIN [Suspect]
     Indication: BREAST CANCER
     Route: 065

REACTIONS (2)
  - PANCYTOPENIA [None]
  - NEOPLASM MALIGNANT [None]
